FAERS Safety Report 7230655-8 (Version None)
Quarter: 2011Q1

REPORT INFORMATION
  Report Type: 
  Country: None (occurrence: None)
  Receive Date: 20110118
  Receipt Date: 20101209
  Transmission Date: 20110831
  Serious: Yes (Death)
  Sender: FDA-Public Use
  Company Number: US-GENZYME-CLOF-1001405

PATIENT
  Sex: Female
  Weight: 44.8 kg

DRUGS (9)
  1. CYCLOPHOSPHAMIDE [Suspect]
     Dosage: 544 MG, QDX3
     Route: 042
     Dates: start: 20081209, end: 20081211
  2. PREDNISONE [Suspect]
     Indication: ACUTE LYMPHOCYTIC LEUKAEMIA
     Dosage: UNK
     Route: 065
     Dates: start: 20081231
  3. VINCRISTINE [Suspect]
     Indication: ACUTE LYMPHOCYTIC LEUKAEMIA
     Dosage: UNK
     Route: 065
     Dates: start: 20081231
  4. CLOLAR [Suspect]
     Indication: ACUTE LYMPHOCYTIC LEUKAEMIA
     Dosage: 27.2 MG/M2, QDX3
     Route: 042
     Dates: start: 20081202, end: 20081204
  5. CLOLAR [Suspect]
     Dosage: 27.2 MG/M2, QDX3
     Route: 042
     Dates: start: 20081209, end: 20081211
  6. CYCLOPHOSPHAMIDE [Suspect]
     Indication: ACUTE LYMPHOCYTIC LEUKAEMIA
     Dosage: 272 MG, ONCE
     Route: 042
     Dates: start: 20081201, end: 20081201
  7. CYCLOPHOSPHAMIDE [Suspect]
     Dosage: 544 MG, QDX3
     Route: 042
     Dates: start: 20081202, end: 20081204
  8. DAUNORUBICIN HCL [Suspect]
     Indication: ACUTE LYMPHOCYTIC LEUKAEMIA
     Dosage: UNK
     Route: 065
     Dates: start: 20081231
  9. ELSPAR [Suspect]
     Indication: ACUTE LYMPHOCYTIC LEUKAEMIA
     Dosage: UNK
     Route: 065
     Dates: start: 20081231

REACTIONS (1)
  - DEATH [None]
